FAERS Safety Report 12954397 (Version 1)
Quarter: 2016Q4

REPORT INFORMATION
  Report Type: Spontaneous
  Country: US (occurrence: US)
  Receive Date: 20161118
  Receipt Date: 20161118
  Transmission Date: 20170207
  Serious: Yes (Other)
  Sender: FDA-Public Use
  Company Number: US-PFIZER INC-2016535100

PATIENT
  Age: 69 Year
  Sex: Female
  Weight: 95 kg

DRUGS (1)
  1. AROMASIN [Suspect]
     Active Substance: EXEMESTANE
     Indication: NEOPLASM MALIGNANT
     Dosage: 25 MG, 1X/DAY
     Route: 048
     Dates: end: 20161020

REACTIONS (4)
  - Swelling [Unknown]
  - Pruritus [Unknown]
  - Drug hypersensitivity [Unknown]
  - Urticaria [Unknown]

NARRATIVE: CASE EVENT DATE: 20160914
